FAERS Safety Report 11510911 (Version 1)
Quarter: 2015Q3

REPORT INFORMATION
  Report Type: Spontaneous
  Country: US (occurrence: US)
  Receive Date: 20150915
  Receipt Date: 20150915
  Transmission Date: 20151125
  Serious: Yes (Other)
  Sender: FDA-Public Use
  Company Number: US-TAKEDA-TPA2013A06154

PATIENT

DRUGS (12)
  1. HUMALOG [Concomitant]
     Active Substance: INSULIN LISPRO
     Dosage: 100 U/ML, UNK
     Dates: start: 1990, end: 2007
  2. ACTOPLUS MET [Suspect]
     Active Substance: METFORMIN HYDROCHLORIDE\PIOGLITAZONE HYDROCHLORIDE
     Dosage: 15-500MG, UNK
     Route: 048
     Dates: start: 20080430, end: 20110911
  3. LANTUS [Concomitant]
     Active Substance: INSULIN GLARGINE
     Dosage: STARTED IN 1990S, UNK
     Dates: end: 2007
  4. GLUCOTROL [Concomitant]
     Active Substance: GLIPIZIDE
     Dosage: 5MG, 10MG, UNK
     Dates: start: 20080430
  5. BYETTA [Concomitant]
     Active Substance: EXENATIDE
     Dosage: 100MCG/0.04ML, UNK
     Dates: start: 20060310, end: 20060808
  6. ACTOS [Suspect]
     Active Substance: PIOGLITAZONE HYDROCHLORIDE
     Indication: TYPE 2 DIABETES MELLITUS
     Dosage: 45 MG, UNK
     Route: 048
     Dates: start: 20010331, end: 20020622
  7. ACTOS [Suspect]
     Active Substance: PIOGLITAZONE HYDROCHLORIDE
     Dosage: UNK
     Route: 048
     Dates: start: 2002, end: 2008
  8. ACTOPLUS MET [Suspect]
     Active Substance: METFORMIN HYDROCHLORIDE\PIOGLITAZONE HYDROCHLORIDE
     Indication: TYPE 2 DIABETES MELLITUS
     Dosage: UNK
     Route: 048
     Dates: start: 2002, end: 2008
  9. GLUCOPHAGE [Concomitant]
     Active Substance: METFORMIN HYDROCHLORIDE
     Dosage: UNK
     Dates: start: 2003
  10. PRECOSE [Concomitant]
     Active Substance: ACARBOSE
     Dosage: STARTED IN 1990S, UNK
  11. JANUVIA [Concomitant]
     Active Substance: SITAGLIPTIN PHOSPHATE
     Dosage: 100 MG, UNK
     Dates: start: 20120911, end: 20121103
  12. METFORMIN [Concomitant]
     Active Substance: METFORMIN HYDROCHLORIDE
     Dosage: 500MG, 1000MG, UNK
     Dates: start: 2000

REACTIONS (1)
  - Bladder cancer [Unknown]

NARRATIVE: CASE EVENT DATE: 20090928
